FAERS Safety Report 5034815-6 (Version None)
Quarter: 2006Q2

REPORT INFORMATION
  Report Type: 
  Country: None (occurrence: None)
  Receive Date: 20060515
  Receipt Date: 20050816
  Transmission Date: 20061013
  Serious: Yes (Other)
  Sender: FDA-Public Use
  Company Number: 19962

PATIENT
  Sex: Female

DRUGS (1)
  1. FAMOTIDINE INJ. 200MG/20ML - BEDFORD LABS, INC. [Suspect]

REACTIONS (1)
  - INJECTION SITE PHLEBITIS [None]
